FAERS Safety Report 7391285-0 (Version None)
Quarter: 2011Q2

REPORT INFORMATION
  Report Type: 
  Country: None (occurrence: None)
  Receive Date: 20110404
  Receipt Date: 20100804
  Transmission Date: 20111010
  Serious: No
  Sender: FDA-Public Use
  Company Number: US-PFIZER INC-2010098789

PATIENT
  Sex: Male
  Weight: 75 kg

DRUGS (4)
  1. SERTRALINE HYDROCHLORIDE [Suspect]
     Indication: OBSESSIVE-COMPULSIVE DISORDER
     Dosage: 25 MG, 1X/DAY
     Route: 048
     Dates: start: 20100728
  2. SERTRALINE HYDROCHLORIDE [Suspect]
     Indication: ANXIETY
  3. PRILOSEC [Concomitant]
     Dosage: UNK
  4. ADVIL LIQUI-GELS [Concomitant]
     Dosage: UNK

REACTIONS (1)
  - ABDOMINAL DISCOMFORT [None]
